FAERS Safety Report 10429443 (Version 1)
Quarter: 2014Q3

REPORT INFORMATION
  Report Type: Spontaneous
  Country: US (occurrence: None)
  Receive Date: 20140902
  Receipt Date: 20140902
  Transmission Date: 20150326
  Serious: Yes (Hospitalization)
  Sender: FDA-Public Use
  Company Number: None

PATIENT
  Age: 56 Year
  Sex: Female

DRUGS (9)
  1. ALBUTEROL. [Concomitant]
     Active Substance: ALBUTEROL
  2. DOXEPIN [Concomitant]
     Active Substance: DOXEPIN
  3. LOSARTAN [Concomitant]
     Active Substance: LOSARTAN
  4. WARFARIN [Suspect]
     Active Substance: WARFARIN
     Indication: PULMONARY EMBOLISM
     Dosage: 2.5 MG/ 5 MG DAILY PO
     Route: 048
     Dates: start: 20140730
  5. LEVETIRACETAM. [Concomitant]
     Active Substance: LEVETIRACETAM
  6. NICOTINE. [Concomitant]
     Active Substance: NICOTINE
  7. OXYCODONE [Concomitant]
     Active Substance: OXYCODONE
  8. AMLODIPINE [Concomitant]
     Active Substance: AMLODIPINE BESYLATE
  9. FLUTICASONE AND SALMETEROL [Concomitant]
     Active Substance: FLUTICASONE PROPIONATE\SALMETEROL XINAFOATE

REACTIONS (2)
  - Coagulation time shortened [None]
  - International normalised ratio increased [None]

NARRATIVE: CASE EVENT DATE: 20140730
